FAERS Safety Report 15260106 (Version 2)
Quarter: 2018Q3

REPORT INFORMATION
  Report Type: Spontaneous
  Country: GB (occurrence: GB)
  Receive Date: 20180809
  Receipt Date: 20180906
  Transmission Date: 20181010
  Serious: Yes (Other)
  Sender: FDA-Public Use
  Company Number: GB-009507513-1805GBR011554

PATIENT
  Age: 34 Year
  Sex: Female
  Weight: 106 kg

DRUGS (32)
  1. DIAZEPAM. [Concomitant]
     Active Substance: DIAZEPAM
     Dosage: BD 2 DAYS THEN 1 A DAY AT NIGHT/ AS AND WHEN NEEDED. MAXIMUM TWO TABLETS DAILY, 20 TABLETS
     Route: 048
     Dates: start: 20180626
  2. CODEINE [Concomitant]
     Active Substance: CODEINE
     Dosage: ONE?TWO 4 TIMES/DAY, WHEN REQUIRED, 56 TABLETS
     Route: 048
     Dates: start: 20180109
  3. NAPROXEN. [Concomitant]
     Active Substance: NAPROXEN
     Dosage: ONE TWICE DAILY, 56 TABLETS
     Route: 048
     Dates: start: 20160908
  4. NAPROXEN. [Concomitant]
     Active Substance: NAPROXEN
     Dosage: ONE TWICE DAILY, 56 TABLETS
     Route: 048
     Dates: start: 20180109
  5. DIAZEPAM. [Concomitant]
     Active Substance: DIAZEPAM
     Dosage: BD 2 DAYS THEN 1 A DAY AT NIGHT/ AS AND WHEN NEEDED. MAXIMUM TWO TABLETS DAILY, 20 TABLETS
     Route: 048
     Dates: start: 20180501
  6. OMEPRAZOLE. [Concomitant]
     Active Substance: OMEPRAZOLE
     Dosage: 1 EVERY DAY, 28 TABLETS
     Route: 048
     Dates: start: 20180626
  7. NEXPLANON [Suspect]
     Active Substance: ETONOGESTREL
     Indication: CONTRACEPTION
     Dosage: 1 DF, UNK
     Route: 059
     Dates: start: 20160706
  8. NAPROXEN. [Concomitant]
     Active Substance: NAPROXEN
     Dosage: ONE TWICE DAILY, 56 TABLETS
     Route: 048
     Dates: start: 20160729
  9. METFORMIN [Concomitant]
     Active Substance: METFORMIN HYDROCHLORIDE
     Dosage: 2 TABLETS TWICE DAILY, 56 TABLETS
     Route: 048
     Dates: start: 20180501
  10. SUKKARTO [Concomitant]
     Active Substance: METFORMIN HYDROCHLORIDE
     Dosage: ONE DAILY AND THEN INCREASE AS PER DIABETIC NURSE UP TO 2 BD, 112 TABLETS
     Route: 048
     Dates: start: 20180220
  11. CLOTRIMAZOLE. [Concomitant]
     Active Substance: CLOTRIMAZOLE
     Dosage: INSERT ONE AT NIGHT, 3 PESSARY
     Dates: start: 20180226
  12. NAPROXEN. [Concomitant]
     Active Substance: NAPROXEN
     Dosage: ONE TWICE DAILY, 56 TABLETS
     Route: 048
     Dates: start: 20180626
  13. CLOTRIMAZOLE. [Concomitant]
     Active Substance: CLOTRIMAZOLE
     Dosage: 1 PACK AS DIRECTED
     Dates: start: 20170817
  14. CODEINE [Concomitant]
     Active Substance: CODEINE
     Dosage: 2 TABLETS 4 TIMES/DAY, 112 TABLETS
     Route: 048
     Dates: start: 20180626
  15. METFORMIN [Concomitant]
     Active Substance: METFORMIN HYDROCHLORIDE
     Dosage: ONE TO BE TAKEN TWICE DAILY, 56 TABLETS
     Route: 048
     Dates: start: 20170112
  16. MIRTAZAPINE. [Concomitant]
     Active Substance: MIRTAZAPINE
     Dosage: ONE AT NIGHT, 28 TABLETS
     Route: 048
     Dates: start: 20160928
  17. CLOTRIMAZOLE. [Concomitant]
     Active Substance: CLOTRIMAZOLE
     Dosage: INSERT ONE AT NIGHT, 3 PESSARY
     Dates: start: 20180426
  18. CODEINE [Concomitant]
     Active Substance: CODEINE
     Dosage: 2 TABLETS 4 TIMES/DAY, 112 TABLETS
     Route: 048
     Dates: start: 20180426
  19. XYLOCAINE 2% WITH EPINEPHRINE [Concomitant]
     Dosage: 1 DF, AS DIRECTED, 1 VIAL
     Dates: start: 20160706
  20. METFORMIN [Concomitant]
     Active Substance: METFORMIN HYDROCHLORIDE
     Dosage: ONE TO BE TAKEN TWICE DAILY, 56 TABLETS
     Route: 048
     Dates: start: 20160830
  21. CLOTRIMAZOLE. [Concomitant]
     Active Substance: CLOTRIMAZOLE
     Dosage: 1 PACK AS DIRECTED
     Dates: start: 20170112
  22. CLOTRIMAZOLE. [Concomitant]
     Active Substance: CLOTRIMAZOLE
     Dosage: 1 PACK AS DIRECTED
     Dates: start: 20170112
  23. FOLIC ACID. [Concomitant]
     Active Substance: FOLIC ACID
     Dosage: ONE DAILY, 28 TABLETS
     Route: 048
     Dates: start: 20180521
  24. CODEINE [Concomitant]
     Active Substance: CODEINE
     Dosage: ONE 4 TIMES/DAY, 56 TABLETS
     Route: 048
     Dates: start: 20180501
  25. METFORMIN [Concomitant]
     Active Substance: METFORMIN HYDROCHLORIDE
     Dosage: ONE TO BE TAKEN TWICE DAILY, 56 TABLETS
     Route: 048
     Dates: start: 20170817
  26. AMOXICILLIN. [Concomitant]
     Active Substance: AMOXICILLIN
     Dosage: ONE 3 TIMES/DAY, 21 TABLETS
     Dates: start: 20170718
  27. CODEINE [Concomitant]
     Active Substance: CODEINE
     Dosage: ONE?TWO 4 TIMES/DAY, WHEN REQUIRED, 56 TABLETS
     Route: 048
     Dates: start: 20160720
  28. NAPROXEN. [Concomitant]
     Active Substance: NAPROXEN
     Dosage: ONE TWICE DAILY, 28 TABLETS
     Route: 048
     Dates: start: 20160720
  29. NAPROXEN. [Concomitant]
     Active Substance: NAPROXEN
     Dosage: ONE TWICE DAILY, 56 TABLETS
     Route: 048
     Dates: start: 20170112
  30. PROPRANOLOL [Concomitant]
     Active Substance: PROPRANOLOL HYDROCHLORIDE
     Dosage: ONE 3 TIMES/DAY AS REQUIRED (PRN), AS DIRECTED (ASD), 84 TABLETS
     Route: 048
     Dates: start: 20160928
  31. CLOTRIMAZOLE. [Concomitant]
     Active Substance: CLOTRIMAZOLE
     Dosage: 1 PACK AS DIRECTED
     Dates: start: 20170817
  32. DIAZEPAM. [Concomitant]
     Active Substance: DIAZEPAM
     Dosage: TDS 2 DAYS THEN 1 BD 2 DAYS, 2 DAYS THEN 1 A DAY AT NIGHT, 20 TABLETS
     Route: 048
     Dates: start: 20180216

REACTIONS (5)
  - Unintended pregnancy [Recovered/Resolved]
  - Pregnancy with implant contraceptive [Recovered/Resolved]
  - Amenorrhoea [Unknown]
  - Complication associated with device [Recovered/Resolved]
  - Abortion spontaneous [Recovering/Resolving]

NARRATIVE: CASE EVENT DATE: 20180425
